FAERS Safety Report 11892905 (Version 2)
Quarter: 2016Q2

REPORT INFORMATION
  Report Type: Spontaneous
  Country: US (occurrence: US)
  Receive Date: 20160106
  Receipt Date: 20160617
  Transmission Date: 20160815
  Serious: No
  Sender: FDA-Public Use
  Company Number: US-BAYER-2016-000495

PATIENT
  Age: 75 Year
  Sex: Male

DRUGS (1)
  1. BETASERON [Suspect]
     Active Substance: INTERFERON BETA-1B
     Indication: MULTIPLE SCLEROSIS
     Dosage: 0.3 MG, QWK
     Route: 058
     Dates: start: 201410

REACTIONS (5)
  - Injection site erythema [None]
  - Product use issue [None]
  - Injection site discolouration [None]
  - Injection site bruising [None]
  - Injection site mass [None]

NARRATIVE: CASE EVENT DATE: 20151230
